FAERS Safety Report 5771833-4 (Version None)
Quarter: 2008Q2

REPORT INFORMATION
  Report Type: 
  Country: None (occurrence: None)
  Receive Date: 20080613
  Receipt Date: 20080610
  Transmission Date: 20081010
  Serious: Yes (Life-Threatening, Disabling, Other)
  Sender: FDA-Public Use
  Company Number: A0732233A

PATIENT
  Age: 69 Year
  Sex: Female

DRUGS (4)
  1. DEXTROAMPHETAMINE [Suspect]
     Indication: NARCOLEPSY
     Dosage: 10MG PER DAY
     Route: 048
     Dates: start: 20080301
  2. DEXTROAMPHETAMINE [Suspect]
     Dosage: 10MG PER DAY
     Route: 048
  3. LIPITOR [Concomitant]
  4. METFORMIN HCL [Concomitant]

REACTIONS (2)
  - SOMNOLENCE [None]
  - THERAPEUTIC RESPONSE DECREASED [None]
